FAERS Safety Report 7810269-9 (Version None)
Quarter: 2011Q4

REPORT INFORMATION
  Report Type: 
  Country: None (occurrence: None)
  Receive Date: 20111012
  Receipt Date: 20110928
  Transmission Date: 20120403
  Serious: Yes (Other)
  Sender: FDA-Public Use
  Company Number: IT-ROCHE-1001044

PATIENT
  Sex: Female

DRUGS (4)
  1. DOXORUBICIN HCL [Suspect]
     Indication: BREAST CANCER METASTATIC
     Route: 065
  2. HERCEPTIN [Suspect]
     Indication: BREAST CANCER METASTATIC
     Dosage: LOADING DOSE
     Route: 065
  3. DOCETAXEL [Suspect]
     Indication: BREAST CANCER METASTATIC
     Route: 065
  4. HERCEPTIN [Suspect]
     Route: 065

REACTIONS (17)
  - NEUTROPENIA [None]
  - DEPRESSION [None]
  - ASTHENIA [None]
  - PLATELET COUNT DECREASED [None]
  - EJECTION FRACTION DECREASED [None]
  - ORAL TOXICITY [None]
  - FEBRILE NEUTROPENIA [None]
  - SKIN TOXICITY [None]
  - GRANULOCYTOPENIA [None]
  - VOMITING [None]
  - BONE MARROW FAILURE [None]
  - LEUKOPENIA [None]
  - ALOPECIA [None]
  - DIARRHOEA [None]
  - NAUSEA [None]
  - PAIN [None]
  - BLOOD ALKALINE PHOSPHATASE ABNORMAL [None]
